FAERS Safety Report 25094550 (Version 1)
Quarter: 2025Q1

REPORT INFORMATION
  Report Type: Spontaneous
  Country: GB (occurrence: GB)
  Receive Date: 20250319
  Receipt Date: 20250319
  Transmission Date: 20250409
  Serious: Yes (Other)
  Sender: GILEAD
  Company Number: None

PATIENT
  Sex: Male

DRUGS (1)
  1. EMTRICITABINE [Suspect]
     Active Substance: EMTRICITABINE
     Indication: Product used for unknown indication
     Dosage: 1TABLET OD
     Route: 065

REACTIONS (2)
  - Osteoporosis [Unknown]
  - Fracture [Unknown]
